FAERS Safety Report 7119719-7 (Version None)
Quarter: 2010Q4

REPORT INFORMATION
  Report Type: 
  Country: None (occurrence: None)
  Receive Date: 20101123
  Receipt Date: 20101119
  Transmission Date: 20110411
  Serious: Yes (Hospitalization)
  Sender: FDA-Public Use
  Company Number: GB-TEVA-256075ISR

PATIENT
  Age: 55 Year
  Sex: Male

DRUGS (1)
  1. FUROSEMIDE [Suspect]
     Indication: HYPERTENSION
     Route: 048
     Dates: start: 20100901, end: 20101024

REACTIONS (7)
  - AGITATION [None]
  - COLD SWEAT [None]
  - CONFUSIONAL STATE [None]
  - FEELING ABNORMAL [None]
  - FEELING COLD [None]
  - HYPONATRAEMIA [None]
  - SOMNOLENCE [None]
